FAERS Safety Report 15829266 (Version 1)
Quarter: 2019Q1

REPORT INFORMATION
  Report Type: Spontaneous
  Country: US (occurrence: US)
  Receive Date: 20190115
  Receipt Date: 20190115
  Transmission Date: 20190417
  Serious: No
  Sender: FDA-Public Use
  Company Number: US-ALLERGAN-1856378US

PATIENT
  Age: 69 Year
  Sex: Female

DRUGS (11)
  1. RESTASIS [Suspect]
     Active Substance: CYCLOSPORINE
     Indication: LACRIMATION INCREASED
     Dosage: 2 GTT, BID
     Route: 047
     Dates: start: 20181127
  2. RESTASIS [Suspect]
     Active Substance: CYCLOSPORINE
     Indication: EYE INFLAMMATION
  3. RESTASIS [Suspect]
     Active Substance: CYCLOSPORINE
     Indication: OCULAR HYPERAEMIA
  4. OMEPRAZOLE. [Concomitant]
     Active Substance: OMEPRAZOLE
     Dosage: UNK
  5. ATENOLOL. [Concomitant]
     Active Substance: ATENOLOL
     Indication: HYPERTENSION
     Dosage: UNK
  6. CRESTOR [Concomitant]
     Active Substance: ROSUVASTATIN CALCIUM
     Indication: BLOOD CHOLESTEROL INCREASED
     Dosage: UNK
  7. VITAMIN C + E [Concomitant]
     Dosage: UNK
  8. WELLBUTRIN [Concomitant]
     Active Substance: BUPROPION HYDROCHLORIDE
     Indication: DEPRESSION
     Dosage: UNK
  9. RESTASIS [Suspect]
     Active Substance: CYCLOSPORINE
     Indication: EYE INFECTION
  10. RESTASIS [Suspect]
     Active Substance: CYCLOSPORINE
     Indication: VISUAL IMPAIRMENT
  11. RESTASIS [Suspect]
     Active Substance: CYCLOSPORINE
     Indication: EYE DISCHARGE

REACTIONS (6)
  - Product container issue [Unknown]
  - Poor quality product administered [Unknown]
  - Pain in extremity [Unknown]
  - Arthritis [Unknown]
  - Intentional product misuse [Unknown]
  - Off label use [Unknown]

NARRATIVE: CASE EVENT DATE: 2018
